FAERS Safety Report 5378637-5 (Version None)
Quarter: 2007Q3

REPORT INFORMATION
  Report Type: 
  Country: None (occurrence: None)
  Receive Date: 20070702
  Receipt Date: 20070702
  Transmission Date: 20080115
  Serious: Yes (Life-Threatening)
  Sender: FDA-Public Use
  Company Number: None

PATIENT
  Age: 54 Year
  Sex: Male
  Weight: 89.3586 kg

DRUGS (2)
  1. TRUVADA [Suspect]
     Indication: HIV INFECTION
     Dosage: DURATION: OVER ONE YEAR
  2. KALETRA [Suspect]
     Dosage: DURATION: OVER ONE YEAR

REACTIONS (1)
  - HEPATOTOXICITY [None]
